FAERS Safety Report 14749553 (Version 1)
Quarter: 2018Q2

REPORT INFORMATION
  Report Type: Report from Study
  Country: US (occurrence: US)
  Receive Date: 20180411
  Receipt Date: 20180411
  Transmission Date: 20180711
  Serious: Yes (Other)
  Sender: FDA-Public Use
  Company Number: US-GILEAD-2018-0332194

PATIENT
  Age: 61 Year
  Sex: Female

DRUGS (1)
  1. LEDIPASVIR/SOFOSBUVIR [Suspect]
     Active Substance: LEDIPASVIR\SOFOSBUVIR
     Indication: CHRONIC HEPATITIS C
     Dosage: 1 DF, QD
     Route: 048
     Dates: start: 20180215

REACTIONS (10)
  - Nephrolithiasis [Unknown]
  - Blood urine present [Unknown]
  - Memory impairment [Unknown]
  - Depression [Unknown]
  - Dry eye [Unknown]
  - Fatigue [Unknown]
  - Nausea [Unknown]
  - Migraine [Unknown]
  - Disorientation [Unknown]
  - Constipation [Unknown]
